FAERS Safety Report 8954053 (Version 1)
Quarter: 2012Q4

REPORT INFORMATION
  Report Type: 
  Country: US (occurrence: US)
  Receive Date: 20121207
  Receipt Date: 20121207
  Transmission Date: 20130627
  Serious: Yes (Hospitalization, Other)
  Sender: FDA-Public Use
  Company Number: US-BAYER-2012-126011

PATIENT
  Age: 34 Year
  Sex: Female

DRUGS (4)
  1. YASMIN [Suspect]
  2. OCELLA [Suspect]
  3. YAZ [Suspect]
  4. SYNTHROID [Concomitant]

REACTIONS (2)
  - Deep vein thrombosis [None]
  - Cholelithiasis [None]
